FAERS Safety Report 5339222-4 (Version None)
Quarter: 2007Q2

REPORT INFORMATION
  Report Type: 
  Country: None (occurrence: None)
  Receive Date: 20070329
  Receipt Date: 20061211
  Transmission Date: 20071010
  Serious: Yes (Other)
  Sender: FDA-Public Use
  Company Number: A03200607405

PATIENT
  Age: 79 Year
  Sex: Male

DRUGS (5)
  1. AMBIEN CR [Suspect]
     Indication: INSOMNIA
     Dosage: 12.5 MG ONCE - ORAL
     Route: 048
     Dates: start: 20061109, end: 20061110
  2. AMBIEN CR [Suspect]
     Indication: INSOMNIA
     Dosage: 6.25 MG ONCE -  ORAL
     Route: 048
     Dates: start: 20061114, end: 20061115
  3. CELECOXIB [Concomitant]
  4. ANTI-ARRHYTHMIC [Concomitant]
  5. THYROID SUPPLEMENT [Concomitant]

REACTIONS (5)
  - DIZZINESS [None]
  - DRUG HYPERSENSITIVITY [None]
  - FEELING DRUNK [None]
  - MALAISE [None]
  - VOMITING [None]
